FAERS Safety Report 9849377 (Version 1)
Quarter: 2014Q1

REPORT INFORMATION
  Report Type: Spontaneous
  Country: US (occurrence: None)
  Receive Date: 20140127
  Receipt Date: 20140127
  Transmission Date: 20141002
  Serious: Yes (Hospitalization, Other)
  Sender: FDA-Public Use
  Company Number: None

PATIENT
  Age: 91 Year
  Sex: Male

DRUGS (1)
  1. METHOTREXATE 15 MG [Suspect]
     Indication: RHEUMATOID ARTHRITIS
     Route: 048
     Dates: start: 20131030

REACTIONS (5)
  - Stomatitis [None]
  - Pancytopenia [None]
  - Renal failure acute [None]
  - Dizziness [None]
  - Nausea [None]
